FAERS Safety Report 11968832 (Version 1)
Quarter: 2016Q1

REPORT INFORMATION
  Report Type: Spontaneous
  Country: US (occurrence: None)
  Receive Date: 20160127
  Receipt Date: 20160127
  Transmission Date: 20160526
  Serious: Yes (Death, Life-Threatening, Hospitalization, Other)
  Sender: FDA-Public Use
  Company Number: None

PATIENT
  Age: 74 Year
  Sex: Female

DRUGS (2)
  1. METFORMIN [Suspect]
     Active Substance: METFORMIN HYDROCHLORIDE
  2. PREDNISONE. [Suspect]
     Active Substance: PREDNISONE

REACTIONS (8)
  - Weight decreased [None]
  - Renal colic [None]
  - Nephrolithiasis [None]
  - Resuscitation [None]
  - Rheumatoid arthritis [None]
  - Atrial fibrillation [None]
  - Apparent death [None]
  - Fluid retention [None]
